FAERS Safety Report 10023994 (Version 2)
Quarter: 2014Q1

REPORT INFORMATION
  Report Type: Spontaneous
  Country: PL (occurrence: PL)
  Receive Date: 20140320
  Receipt Date: 20140327
  Transmission Date: 20141002
  Serious: Yes (Hospitalization)
  Sender: FDA-Public Use
  Company Number: PL-ASTRAZENECA-2014SE17895

PATIENT
  Age: 44 Year
  Sex: Female

DRUGS (6)
  1. PULMICORT [Suspect]
     Indication: EOSINOPHILIC PNEUMONIA CHRONIC
     Route: 055
  2. FORMOTEROL [Suspect]
     Indication: ASTHMA
     Route: 055
  3. FORMOTEROL [Suspect]
     Indication: EOSINOPHILIC PNEUMONIA CHRONIC
     Route: 055
  4. DEXAVEN [Suspect]
     Indication: ASTHMA
     Route: 042
  5. ATROVENT [Suspect]
     Indication: ASTHMA
     Dosage: NEBULIZING
  6. METYPRED [Suspect]
     Indication: ASTHMA

REACTIONS (1)
  - Asthma [Recovered/Resolved]
